FAERS Safety Report 21984067 (Version 2)
Quarter: 2024Q1

REPORT INFORMATION
  Report Type: Spontaneous
  Country: US (occurrence: US)
  Receive Date: 20230213
  Receipt Date: 20240222
  Transmission Date: 20240409
  Serious: Yes (Hospitalization, Other)
  Sender: FDA-Public Use
  Company Number: US-STRIDES ARCOLAB LIMITED-2022SP007602

PATIENT
  Age: 11 Year
  Sex: Female

DRUGS (8)
  1. DOXORUBICIN [Suspect]
     Active Substance: DOXORUBICIN
     Indication: Ewing^s sarcoma
     Dosage: UNK, CYCLICAL (CUMULATIVE DOSE: 375 MG/M2) ( DURATION: 6 MONTHS)
     Route: 065
  2. ETOPOSIDE [Suspect]
     Active Substance: ETOPOSIDE
     Indication: Ewing^s sarcoma
     Dosage: UNK, CYCLICAL (CUMULATIVE DOSE OF 1.75 G/M2) (DURATION 6 MONTHS)
     Route: 065
  3. ETOPOSIDE [Suspect]
     Active Substance: ETOPOSIDE
     Dosage: UNK, CYCLICAL (CUMULATIVE DOSE OF 3.5 G/M2) (DURATION 6 MONTHS)
     Route: 065
  4. ETOPOSIDE [Suspect]
     Active Substance: ETOPOSIDE
     Dosage: UNK, WITH 50% DOSE REDUCTION
     Route: 065
  5. CYCLOPHOSPHAMIDE [Suspect]
     Active Substance: CYCLOPHOSPHAMIDE
     Indication: Ewing^s sarcoma
     Dosage: UNK, CYCLICAL (CUMULATIVE DOSE OF 12.25 G/M2) (DURATION 6 MONTHS)
     Route: 065
  6. IFOSFAMIDE [Suspect]
     Active Substance: IFOSFAMIDE
     Indication: Ewing^s sarcoma
     Dosage: UNK, CYCLICAL (CUMULATIVE DOSE OF 63 G/M2) (DURATION 6 MONTHS)
     Route: 065
  7. TOPOTECAN [Suspect]
     Active Substance: TOPOTECAN HYDROCHLORIDE
     Indication: Ewing^s sarcoma
     Dosage: UNK, CYCLICAL (CUMULATIVE DOSE OF 18.75 MG/M2) (DURATION 6 MONTHS)
     Route: 065
  8. VINCRISTINE [Suspect]
     Active Substance: VINCRISTINE
     Indication: Ewing^s sarcoma
     Dosage: UNK, CYCLICAL (CUMULATIVE DOSE: 30 MG/M2) (DURATION 6 MONTHS)
     Route: 065

REACTIONS (6)
  - Sepsis [Unknown]
  - Pneumonia bacterial [Unknown]
  - Lymphopenia [Unknown]
  - Myelosuppression [Unknown]
  - Meningitis cryptococcal [Unknown]
  - Meningitis bacterial [Unknown]
